FAERS Safety Report 24153931 (Version 1)
Quarter: 2024Q3

REPORT INFORMATION
  Report Type: Spontaneous
  Country: CN (occurrence: CN)
  Receive Date: 20240730
  Receipt Date: 20240730
  Transmission Date: 20241017
  Serious: Yes (Hospitalization)
  Sender: NOVARTIS
  Company Number: CN-002147023-NVSC2024CN155307

PATIENT
  Age: 87 Year
  Sex: Male
  Weight: 51.2 kg

DRUGS (1)
  1. ENTRESTO [Suspect]
     Active Substance: SACUBITRIL\VALSARTAN
     Indication: Cerebral infarction
     Dosage: 100.000 MG, QD FEEDING
     Route: 045
     Dates: start: 20240705, end: 20240724

REACTIONS (3)
  - Hyperkalaemia [Unknown]
  - Off label use [Unknown]
  - Product use issue [Unknown]

NARRATIVE: CASE EVENT DATE: 20240723
